FAERS Safety Report 10203463 (Version 2)
Quarter: 2014Q2

REPORT INFORMATION
  Report Type: Spontaneous
  Country: IL (occurrence: IL)
  Receive Date: 20140529
  Receipt Date: 20140609
  Transmission Date: 20141212
  Serious: Yes (Hospitalization, Other)
  Sender: FDA-Public Use
  Company Number: IL-AMGEN-ISRSP2014038658

PATIENT
  Age: 60 Year
  Sex: Female
  Weight: 60 kg

DRUGS (8)
  1. NPLATE [Suspect]
     Indication: IMMUNE THROMBOCYTOPENIC PURPURA
     Dosage: 126 MG, EVERY 7 DAYS
     Route: 058
     Dates: start: 20140319
  2. BONDORMIN [Concomitant]
     Indication: SLEEP DISORDER
     Dosage: 0.25 UNK, QD
     Route: 048
  3. ELTROXIN [Concomitant]
     Indication: HYPERTHYROIDISM
     Dosage: 105 UNK, QD
     Route: 048
  4. CIPRALEX                           /01588501/ [Concomitant]
     Dosage: 10 UNK, QD
     Route: 048
  5. CIPRALEX                           /01588501/ [Concomitant]
     Indication: ANXIETY
  6. ENALADEX [Concomitant]
     Indication: HYPERTENSION
     Dosage: 20 UNK, BID
     Route: 048
  7. VITAMIN B12                        /00056201/ [Concomitant]
     Indication: VITAMIN B12 DEFICIENCY
     Dosage: UNK UNK, QD
     Route: 048
  8. SIMOVIL [Concomitant]
     Indication: HYPERLIPIDAEMIA
     Dosage: 40 UNK, QD
     Route: 048

REACTIONS (1)
  - Diverticulitis [Unknown]
